FAERS Safety Report 10173031 (Version 1)
Quarter: 2014Q2

REPORT INFORMATION
  Report Type: Spontaneous
  Country: US (occurrence: None)
  Receive Date: 20140415
  Receipt Date: 20140415
  Transmission Date: 20141212
  Serious: Yes (Other)
  Sender: FDA-Public Use
  Company Number: ALL1-2013-08813

PATIENT
  Age: 8 Year
  Sex: Male
  Weight: 20.3 kg

DRUGS (1)
  1. VYVANSE (LISDEXAMFETAMINE DIMESYLATE) CAPSULE [Suspect]
     Indication: PRODUCT USED FOR UNKNOWN INDICATION
     Dosage: 20 MG, 1X/DAY:QD (QAM), ORAL
     Route: 048
     Dates: start: 20130916, end: 20131212

REACTIONS (4)
  - Dyspnoea [None]
  - Paraesthesia [None]
  - Agitation [None]
  - Dizziness [None]
